FAERS Safety Report 4417454-7 (Version None)
Quarter: 2004Q3

REPORT INFORMATION
  Report Type: 
  Country: None (occurrence: None)
  Receive Date: 20040803
  Receipt Date: 20040713
  Transmission Date: 20050211
  Serious: No
  Sender: FDA-Public Use
  Company Number: 2004-02521

PATIENT
  Age: 21 Year
  Sex: Male
  Weight: 107 kg

DRUGS (8)
  1. ANDRODERM [Suspect]
     Indication: HYPOPITUITARISM
     Dosage: 1 PATCH , DAILY, TRANSDERMAL
     Route: 062
     Dates: start: 20021001, end: 20030801
  2. CHEMOTHERAPY [Suspect]
     Indication: MALIGNANT HISTIOCYTOSIS
  3. LANTUS [Concomitant]
  4. SYNTHROID [Concomitant]
  5. CORTEF [Concomitant]
  6. URSO [Concomitant]
  7. DDAVP [Concomitant]
  8. EMORRIL (NIFURATEL) [Concomitant]

REACTIONS (1)
  - HEPATIC ENZYME INCREASED [None]
